FAERS Safety Report 4334879-9 (Version None)
Quarter: 2004Q2

REPORT INFORMATION
  Report Type: 
  Country: None (occurrence: None)
  Receive Date: 20040408
  Receipt Date: 20040405
  Transmission Date: 20050107
  Serious: Yes (Hospitalization)
  Sender: FDA-Public Use
  Company Number: 200411428FR

PATIENT
  Age: 85 Year
  Sex: Female

DRUGS (7)
  1. LANTUS [Suspect]
     Indication: DIABETES MELLITUS
     Route: 058
     Dates: start: 20040308
  2. TRIATEC [Concomitant]
     Route: 048
  3. ISOPTIN [Concomitant]
     Route: 048
  4. SPASFON [Concomitant]
  5. ANALGESIC LIQ [Concomitant]
     Indication: ARTHRALGIA
     Route: 048
     Dates: start: 20040322
  6. HELICIDINE [Concomitant]
     Indication: COUGH
     Route: 048
     Dates: start: 20040322
  7. TETRAZEPAM [Concomitant]
     Indication: ARTHRALGIA
     Dates: start: 20040322

REACTIONS (5)
  - ARTHRALGIA [None]
  - BLOOD GLUCOSE DECREASED [None]
  - COUGH [None]
  - MYALGIA [None]
  - SYNCOPE VASOVAGAL [None]
